FAERS Safety Report 16891607 (Version 2)
Quarter: 2019Q4

REPORT INFORMATION
  Report Type: Report from Study
  Country: JP (occurrence: JP)
  Receive Date: 20191007
  Receipt Date: 20191023
  Transmission Date: 20200122
  Serious: Yes (Hospitalization)
  Sender: FDA-Public Use
  Company Number: JP-ACTELION-A-CH2018-180509

PATIENT
  Age: 73 Year
  Sex: Female
  Weight: 44 kg

DRUGS (11)
  1. OPALMON [Concomitant]
     Active Substance: LIMAPROST
  2. FERROMIA [Concomitant]
     Active Substance: SODIUM FERROUS CITRATE
  3. ADEMPAS [Concomitant]
     Active Substance: RIOCIGUAT
  4. LIPITOR [Concomitant]
     Active Substance: ATORVASTATIN CALCIUM
  5. URSO [Concomitant]
     Active Substance: URSODIOL
  6. THYRADIN [Concomitant]
     Active Substance: LEVOTHYROXINE
  7. LASIX [Concomitant]
     Active Substance: FUROSEMIDE
  8. OPSUMIT [Suspect]
     Active Substance: MACITENTAN
     Indication: PULMONARY ARTERIAL HYPERTENSION
     Dosage: 10 MG, QD
     Route: 048
     Dates: start: 20160824
  9. UPTRAVI [Suspect]
     Active Substance: SELEXIPAG
     Indication: PULMONARY ARTERIAL HYPERTENSION
     Dosage: 0.4 MG, BID
     Route: 048
     Dates: start: 20180114
  10. JUVELA N [Concomitant]
     Active Substance: TOCOPHERYL NICOTINATE, D-.ALPHA.
  11. BERASUS [Concomitant]
     Active Substance: BERAPROST SODIUM

REACTIONS (2)
  - Bronchitis [Recovering/Resolving]
  - Nausea [Recovering/Resolving]

NARRATIVE: CASE EVENT DATE: 20180125
